FAERS Safety Report 5607772-9 (Version None)
Quarter: 2008Q1

REPORT INFORMATION
  Report Type: 
  Country: None (occurrence: None)
  Receive Date: 20080130
  Receipt Date: 20080117
  Transmission Date: 20080703
  Serious: Yes (Other)
  Sender: FDA-Public Use
  Company Number: BR-GENENTECH-252821

PATIENT
  Age: 60 Year
  Sex: Female

DRUGS (4)
  1. HERCEPTIN [Suspect]
     Indication: BREAST CANCER
     Route: 042
     Dates: start: 20071123
  2. ANTHRACYCLINE [Concomitant]
     Indication: DRUG USE FOR UNKNOWN INDICATION
  3. ENALAPRIL [Concomitant]
     Indication: DRUG USE FOR UNKNOWN INDICATION
  4. TAMOXIFEN [Concomitant]
     Indication: DRUG USE FOR UNKNOWN INDICATION

REACTIONS (3)
  - CONDUCTION DISORDER [None]
  - VENTRICULAR ARRHYTHMIA [None]
  - VENTRICULAR EXTRASYSTOLES [None]
